FAERS Safety Report 25086053 (Version 1)
Quarter: 2025Q1

REPORT INFORMATION
  Report Type: Spontaneous
  Country: IE (occurrence: IE)
  Receive Date: 20250317
  Receipt Date: 20250317
  Transmission Date: 20250408
  Serious: Yes (Death, Hospitalization)
  Sender: NOVARTIS
  Company Number: None

PATIENT
  Age: 67 Year
  Sex: Female
  Weight: 32 kg

DRUGS (6)
  1. TRAMETINIB [Suspect]
     Active Substance: TRAMETINIB
     Indication: Targeted cancer therapy
     Route: 048
     Dates: start: 20240704
  2. NAPORAFENIB [Suspect]
     Active Substance: NAPORAFENIB
     Indication: Targeted cancer therapy
     Route: 048
     Dates: start: 20240704
  3. HALOPERIDOL [Concomitant]
     Active Substance: HALOPERIDOL
     Indication: Product used for unknown indication
     Route: 065
  4. MIDAZOLAM [Concomitant]
     Active Substance: MIDAZOLAM
     Indication: Product used for unknown indication
     Route: 065
  5. OXYCODONE [Concomitant]
     Active Substance: OXYCODONE
     Indication: Product used for unknown indication
     Route: 065
  6. METHADONE [Concomitant]
     Active Substance: METHADONE HYDROCHLORIDE
     Indication: Product used for unknown indication
     Route: 065

REACTIONS (4)
  - Lung adenocarcinoma [Fatal]
  - Metastases to meninges [Fatal]
  - Pneumonia [Fatal]
  - Myocardial stunning [Fatal]

NARRATIVE: CASE EVENT DATE: 20240101
